FAERS Safety Report 9377821 (Version 2)
Quarter: 2015Q2

REPORT INFORMATION
  Report Type: Spontaneous
  Country: US (occurrence: US)
  Receive Date: 20130701
  Receipt Date: 20150424
  Transmission Date: 20150821
  Serious: Yes (Hospitalization)
  Sender: FDA-Public Use
  Company Number: PHHY2013US066936

PATIENT
  Age: 79 Year
  Sex: Male

DRUGS (6)
  1. LISINOPRIL. [Concomitant]
     Active Substance: LISINOPRIL
     Indication: PRODUCT USED FOR UNKNOWN INDICATION
     Route: 065
  2. LOVASTATIN. [Concomitant]
     Active Substance: LOVASTATIN
     Indication: PRODUCT USED FOR UNKNOWN INDICATION
     Route: 065
  3. ANTIBIOTIC [Concomitant]
     Active Substance: UNSPECIFIED INGREDIENT
     Indication: URINARY TRACT INFECTION
     Route: 065
  4. TRIAMCINOLONE [Concomitant]
     Active Substance: TRIAMCINOLONE
     Indication: PRODUCT USED FOR UNKNOWN INDICATION
     Route: 065
  5. METHOTREXATE [Suspect]
     Active Substance: METHOTREXATE
     Indication: PSORIASIS
     Dosage: 12.5 MG, QW
     Route: 065
  6. AMLODIPINE [Concomitant]
     Active Substance: AMLODIPINE BESYLATE
     Indication: PRODUCT USED FOR UNKNOWN INDICATION
     Route: 065

REACTIONS (23)
  - Parakeratosis [Recovering/Resolving]
  - Blister [Recovering/Resolving]
  - Pancytopenia [Recovering/Resolving]
  - Mucosal ulceration [Unknown]
  - Orthostatic hypotension [Unknown]
  - Toxicity to various agents [Unknown]
  - Lichenoid keratosis [Recovering/Resolving]
  - Pyrexia [Unknown]
  - Dermatitis [Unknown]
  - Accidental overdose [Unknown]
  - Staphylococcal bacteraemia [Unknown]
  - Tachycardia [Unknown]
  - Pain [Recovering/Resolving]
  - Hypophagia [Unknown]
  - Thrombocytopenia [Recovering/Resolving]
  - Erythema [Unknown]
  - Hyperplasia [Unknown]
  - Cardiac murmur [Unknown]
  - Oral mucosa erosion [Unknown]
  - Delirium [Unknown]
  - Skin erosion [Recovering/Resolving]
  - Eosinophil count increased [Recovering/Resolving]
  - Anaemia megaloblastic [Unknown]
